FAERS Safety Report 8957229 (Version 1)
Quarter: 2012Q4

REPORT INFORMATION
  Report Type: 
  Country: GB (occurrence: GB)
  Receive Date: 20121210
  Receipt Date: 20121210
  Transmission Date: 20130627
  Serious: Yes (Hospitalization, Other)
  Sender: FDA-Public Use
  Company Number: GB-SANOFI-AVENTIS-2012SA088602

PATIENT
  Age: 62 Year
  Sex: Female

DRUGS (5)
  1. DRONEDARONE [Suspect]
     Indication: DRUG USE FOR UNKNOWN INDICATION
     Route: 048
     Dates: start: 20121006, end: 20121011
  2. BISOPROLOL [Concomitant]
  3. DOXAZOSIN [Concomitant]
  4. FUROSEMIDE [Concomitant]
  5. WARFARIN [Concomitant]

REACTIONS (4)
  - Angina pectoris [Recovered/Resolved]
  - Chest discomfort [Recovered/Resolved]
  - Dyspnoea [Recovered/Resolved]
  - Malaise [Recovered/Resolved]
